FAERS Safety Report 9616512 (Version 1)
Quarter: 2013Q4

REPORT INFORMATION
  Report Type: Spontaneous
  Country: US (occurrence: US)
  Receive Date: 20131011
  Receipt Date: 20131011
  Transmission Date: 20140711
  Serious: No
  Sender: FDA-Public Use
  Company Number: US-BAXTER-2013BAX018062

PATIENT
  Age: 13 Year
  Sex: Male

DRUGS (5)
  1. DIANEAL PD2 [Suspect]
     Indication: PERITONEAL DIALYSIS
     Dates: start: 20111230
  2. EPOGEN [Suspect]
     Indication: ANAEMIA
     Route: 065
  3. EPOGEN [Suspect]
     Indication: RENAL FAILURE
  4. LISINOPRIL [Suspect]
     Indication: PRODUCT USED FOR UNKNOWN INDICATION
     Route: 065
     Dates: end: 20130422
  5. LISINOPRIL [Suspect]
     Route: 065
     Dates: start: 20130507

REACTIONS (3)
  - Blood pressure decreased [Recovered/Resolved]
  - Decreased appetite [Recovered/Resolved]
  - Incorrect dose administered [Unknown]
